FAERS Safety Report 9925138 (Version 1)
Quarter: 2014Q1

REPORT INFORMATION
  Report Type: Spontaneous
  Country: US (occurrence: None)
  Receive Date: 20140225
  Receipt Date: 20140225
  Transmission Date: 20141002
  Serious: Yes (Other)
  Sender: FDA-Public Use
  Company Number: None

PATIENT
  Age: 32 Year
  Sex: Male
  Weight: 81.65 kg

DRUGS (1)
  1. PROPECIA [Suspect]
     Indication: ALOPECIA
     Dosage: 1 PILL
     Route: 048
     Dates: start: 20110320, end: 20120620

REACTIONS (8)
  - Lipodystrophy acquired [None]
  - Libido decreased [None]
  - Erectile dysfunction [None]
  - Penile size reduced [None]
  - Anhedonia [None]
  - Blood luteinising hormone decreased [None]
  - Blood follicle stimulating hormone decreased [None]
  - Blood testosterone decreased [None]
